FAERS Safety Report 5100962-3 (Version None)
Quarter: 2006Q3

REPORT INFORMATION
  Report Type: 
  Country: None (occurrence: None)
  Receive Date: 20060911
  Receipt Date: 20050425
  Transmission Date: 20061208
  Serious: Yes (Other)
  Sender: FDA-Public Use
  Company Number: PHRM2005FR01414

PATIENT
  Age: 35 Year
  Sex: Female

DRUGS (3)
  1. LIORESAL [Suspect]
     Indication: MUSCLE SPASMS
     Dosage: 90 MG/DAY
     Route: 048
     Dates: start: 20020101
  2. DITROPAN [Concomitant]
     Dosage: 15 MG/DAY
     Route: 048
  3. PROZAC [Concomitant]
     Route: 048
     Dates: end: 20050401

REACTIONS (4)
  - CAESAREAN SECTION [None]
  - DRUG EXPOSURE DURING PREGNANCY [None]
  - NORMAL NEWBORN [None]
  - URINARY TRACT INFECTION [None]
